FAERS Safety Report 18964006 (Version 1)
Quarter: 2021Q1

REPORT INFORMATION
  Report Type: Spontaneous
  Country: US (occurrence: US)
  Receive Date: 20210303
  Receipt Date: 20210303
  Transmission Date: 20210420
  Serious: No
  Sender: FDA-Public Use
  Company Number: US-AMNEAL PHARMACEUTICALS-2020-AMRX-00489

PATIENT
  Age: 81 Year
  Sex: Male
  Weight: 55 kg

DRUGS (1)
  1. RYTARY [Suspect]
     Active Substance: CARBIDOPA\LEVODOPA
     Indication: PARKINSON^S DISEASE
     Dosage: TAKE 2?3 CAPSULES BY MOUTH EVERY 3 HOURS (5?6 TIMES A DAY) MAX 18 CAPSULES PER DAY
     Route: 048
     Dates: start: 20200123, end: 20200213

REACTIONS (6)
  - Nightmare [Recovering/Resolving]
  - Hallucination [Recovering/Resolving]
  - Dyspepsia [Recovering/Resolving]
  - Paranoia [Recovering/Resolving]
  - Fall [Recovering/Resolving]
  - Confusional state [Recovering/Resolving]

NARRATIVE: CASE EVENT DATE: 20200213
